FAERS Safety Report 6531963-6 (Version None)
Quarter: 2010Q1

REPORT INFORMATION
  Report Type: 
  Country: None (occurrence: None)
  Receive Date: 20100108
  Receipt Date: 20091125
  Transmission Date: 20100710
  Serious: Yes (Hospitalization)
  Sender: FDA-Public Use
  Company Number: IT-PFIZER INC-2009297250

PATIENT
  Age: 63 Year
  Sex: Male

DRUGS (6)
  1. ADRIBLASTINA [Suspect]
     Indication: LYMPHOMA
     Dosage: 60 MG/M2, CYCLIC
     Route: 042
     Dates: start: 20090813, end: 20090903
  2. VINCRISTINE [Suspect]
     Indication: LYMPHOMA
     Dosage: 1.4 MG/M2, CYCLIC
     Route: 042
     Dates: start: 20090813, end: 20090903
  3. MABTHERA [Suspect]
     Indication: LYMPHOMA
     Dosage: 375 MG/M2, CYCLIC
     Route: 042
     Dates: start: 20090812, end: 20090902
  4. CYCLOPHOSPHAMIDE [Suspect]
     Indication: LYMPHOMA
     Dosage: 750 MG/M2, CYCLIC
     Route: 042
     Dates: start: 20090813, end: 20090903
  5. LANSOPRAZOLE [Concomitant]
     Indication: PROPHYLAXIS AGAINST GASTROINTESTINAL ULCER
     Dosage: 30 MG
     Route: 048
     Dates: start: 20090812, end: 20090911
  6. PREDNISONE [Concomitant]
     Indication: LYMPHOMA
     Dosage: 100 MG
     Route: 048
     Dates: start: 20090813, end: 20090907

REACTIONS (3)
  - EROSIVE BALANITIS [None]
  - FEBRILE NEUTROPENIA [None]
  - STOMATITIS [None]
